FAERS Safety Report 4309258-0 (Version None)
Quarter: 2004Q1

REPORT INFORMATION
  Report Type: 
  Country: None (occurrence: None)
  Receive Date: 20040301
  Receipt Date: 20040217
  Transmission Date: 20041129
  Serious: Yes (Hospitalization)
  Sender: FDA-Public Use
  Company Number: US-JNJFOC-20040203862

PATIENT
  Age: 46 Year
  Sex: Female

DRUGS (8)
  1. DURAGESIC [Suspect]
     Indication: CANCER PAIN
     Dosage: 200 UG/HR, TRANSDERMAL; 175 UG/HR, TRANSDERMAL
     Route: 062
     Dates: end: 20040117
  2. DURAGESIC [Suspect]
     Indication: CANCER PAIN
     Dosage: 200 UG/HR, TRANSDERMAL; 175 UG/HR, TRANSDERMAL
     Route: 062
     Dates: start: 20040117, end: 20040122
  3. PROMETHAZINE [Concomitant]
  4. PAROXETINE HCL [Concomitant]
  5. LORAZEPAM [Concomitant]
  6. AMBIEN [Concomitant]
  7. SEROQUEL [Concomitant]
  8. PERCOCET [Concomitant]

REACTIONS (1)
  - LETHARGY [None]
